FAERS Safety Report 15607865 (Version 6)
Quarter: 2020Q3

REPORT INFORMATION
  Report Type: Report from Study
  Country: CA (occurrence: CA)
  Receive Date: 20181112
  Receipt Date: 20191212
  Transmission Date: 20201104
  Serious: Yes (Other)
  Sender: FDA-Public Use
  Company Number: PHHY2011CA96021

PATIENT
  Age: 47 Year
  Sex: Female

DRUGS (34)
  1. XOLAIR [Suspect]
     Active Substance: OMALIZUMAB
     Dosage: UNK
     Route: 058
     Dates: start: 20160531
  2. VENTOLIN [Concomitant]
     Active Substance: ALBUTEROL SULFATE
     Indication: PRODUCT USED FOR UNKNOWN INDICATION
     Route: 065
  3. ARAVA [Concomitant]
     Active Substance: LEFLUNOMIDE
     Indication: PRODUCT USED FOR UNKNOWN INDICATION
     Route: 065
  4. XOLAIR [Suspect]
     Active Substance: OMALIZUMAB
     Dosage: UNK
     Route: 058
     Dates: start: 20141103
  5. CIMZIA [Concomitant]
     Active Substance: CERTOLIZUMAB PEGOL
     Indication: PRODUCT USED FOR UNKNOWN INDICATION
     Route: 065
  6. CICLOSPORIN [Suspect]
     Active Substance: CYCLOSPORINE
     Indication: PRODUCT USED FOR UNKNOWN INDICATION
     Dosage: UNK
     Route: 065
  7. HUMIRA [Concomitant]
     Active Substance: ADALIMUMAB
     Indication: PRODUCT USED FOR UNKNOWN INDICATION
     Route: 065
  8. SULFASALAZINE. [Concomitant]
     Active Substance: SULFASALAZINE
     Indication: PRODUCT USED FOR UNKNOWN INDICATION
     Route: 065
  9. PLAQUENIL [Concomitant]
     Active Substance: HYDROXYCHLOROQUINE SULFATE
     Indication: PRODUCT USED FOR UNKNOWN INDICATION
     Route: 065
  10. ADVAIR HFA [Concomitant]
     Active Substance: FLUTICASONE PROPIONATE\SALMETEROL XINAFOATE
     Indication: ASTHMA
     Dosage: UNK
     Route: 055
  11. ARALEN [Concomitant]
     Active Substance: CHLOROQUINE PHOSPHATE
     Indication: PRODUCT USED FOR UNKNOWN INDICATION
     Route: 065
  12. PERCOCET [Concomitant]
     Active Substance: ACETAMINOPHEN\OXYCODONE HYDROCHLORIDE
     Indication: PRODUCT USED FOR UNKNOWN INDICATION
     Route: 065
  13. ENBREL [Concomitant]
     Active Substance: ETANERCEPT
     Indication: PRODUCT USED FOR UNKNOWN INDICATION
     Route: 065
  14. GOLD SODIUM CHLORIDE [Concomitant]
     Active Substance: SODIUM TETRACHLOROAURATE
     Indication: PRODUCT USED FOR UNKNOWN INDICATION
     Route: 065
  15. XOLAIR [Suspect]
     Active Substance: OMALIZUMAB
     Indication: ASTHMA
     Dosage: 225 MG, BIW
     Route: 058
     Dates: start: 20111013
  16. XOLAIR [Suspect]
     Active Substance: OMALIZUMAB
     Dosage: UNK
     Route: 058
     Dates: start: 20141222
  17. XOLAIR [Suspect]
     Active Substance: OMALIZUMAB
     Dosage: UNK
     Route: 058
     Dates: start: 20160519
  18. BENADRYL [Concomitant]
     Active Substance: DIPHENHYDRAMINE HYDROCHLORIDE
     Indication: PRODUCT USED FOR UNKNOWN INDICATION
     Route: 065
  19. REMICADE [Concomitant]
     Active Substance: INFLIXIMAB
     Indication: PRODUCT USED FOR UNKNOWN INDICATION
     Route: 065
  20. IMURAN [Concomitant]
     Active Substance: AZATHIOPRINE
     Indication: PRODUCT USED FOR UNKNOWN INDICATION
     Route: 065
  21. TAR [Concomitant]
     Active Substance: TAR
     Indication: PRODUCT USED FOR UNKNOWN INDICATION
     Dosage: UNK UNK, QD
     Route: 061
     Dates: start: 201803
  22. ARISTOCORT [Concomitant]
     Active Substance: TRIAMCINOLONE DIACETATE
     Indication: PRODUCT USED FOR UNKNOWN INDICATION
     Dosage: UNK UNK, PRN
     Route: 061
  23. XOLAIR [Suspect]
     Active Substance: OMALIZUMAB
     Dosage: UNK
     Route: 058
     Dates: start: 20161020
  24. XOLAIR [Suspect]
     Active Substance: OMALIZUMAB
     Dosage: UNK
     Route: 058
     Dates: start: 20161215
  25. SINGULAIR [Concomitant]
     Active Substance: MONTELUKAST SODIUM
     Indication: PRODUCT USED FOR UNKNOWN INDICATION
     Route: 065
  26. PREDNISONE. [Concomitant]
     Active Substance: PREDNISONE
     Indication: PRODUCT USED FOR UNKNOWN INDICATION
     Dosage: UNK
     Route: 065
     Dates: start: 2015
  27. ATARAX [Concomitant]
     Active Substance: HYDROXYZINE HYDROCHLORIDE
     Indication: PRODUCT USED FOR UNKNOWN INDICATION
     Route: 065
  28. STELARA [Concomitant]
     Active Substance: USTEKINUMAB
     Indication: PRODUCT USED FOR UNKNOWN INDICATION
     Route: 065
  29. XOLAIR [Suspect]
     Active Substance: OMALIZUMAB
     Indication: PSORIATIC ARTHROPATHY
     Dosage: UNK
     Route: 058
     Dates: start: 20140515
  30. XOLAIR [Suspect]
     Active Substance: OMALIZUMAB
     Dosage: UNK
     Route: 058
     Dates: start: 20160505
  31. XOLAIR [Suspect]
     Active Substance: OMALIZUMAB
     Dosage: UNK
     Route: 058
     Dates: start: 20170112, end: 201701
  32. CYCLOPHOSPHAMIDE. [Concomitant]
     Active Substance: CYCLOPHOSPHAMIDE
     Indication: PRODUCT USED FOR UNKNOWN INDICATION
     Route: 065
  33. VITAMIN D [Concomitant]
     Active Substance: VITAMIN D NOS
     Indication: PRODUCT USED FOR UNKNOWN INDICATION
     Dosage: UNK UNK, QD
     Route: 061
  34. SIMPONI [Concomitant]
     Active Substance: GOLIMUMAB
     Indication: PRODUCT USED FOR UNKNOWN INDICATION
     Route: 065

REACTIONS (39)
  - Dyspnoea [Recovering/Resolving]
  - Psoriasis [Not Recovered/Not Resolved]
  - Skin exfoliation [Unknown]
  - Viral infection [Recovering/Resolving]
  - Dry skin [Unknown]
  - Migraine [Unknown]
  - Rales [Unknown]
  - Headache [Recovered/Resolved]
  - Urticaria [Not Recovered/Not Resolved]
  - Quality of life decreased [Unknown]
  - Infection [Unknown]
  - Arthritis [Unknown]
  - Respiratory tract congestion [Recovered/Resolved]
  - Eye swelling [Unknown]
  - Cough [Recovering/Resolving]
  - C-reactive protein increased [Unknown]
  - Blood pressure systolic increased [Unknown]
  - Abdominal discomfort [Unknown]
  - Weight decreased [Unknown]
  - Nasopharyngitis [Recovering/Resolving]
  - Influenza [Unknown]
  - General physical condition abnormal [Unknown]
  - Sinusitis [Unknown]
  - Hypoventilation [Unknown]
  - Gastroenteritis [Unknown]
  - Wheezing [Unknown]
  - Skin burning sensation [Unknown]
  - Pain of skin [Unknown]
  - Nausea [Recovered/Resolved]
  - Generalised oedema [Unknown]
  - Pyrexia [Unknown]
  - Rash erythematous [Unknown]
  - Erythema [Unknown]
  - Psoriatic arthropathy [Unknown]
  - Respiratory tract infection [Unknown]
  - Illness [Unknown]
  - Diarrhoea [Unknown]
  - Pain [Unknown]
  - Product use in unapproved indication [Unknown]

NARRATIVE: CASE EVENT DATE: 20111013
